FAERS Safety Report 24943273 (Version 2)
Quarter: 2025Q3

REPORT INFORMATION
  Report Type: Spontaneous
  Country: AU (occurrence: AU)
  Receive Date: 20250207
  Receipt Date: 20250810
  Transmission Date: 20251021
  Serious: Yes (Death, Other)
  Sender: ALEXION PHARMACEUTICALS
  Company Number: None

PATIENT
  Age: 85 Year
  Sex: Male

DRUGS (4)
  1. QUETIAPINE FUMARATE [Suspect]
     Active Substance: QUETIAPINE FUMARATE
     Dosage: 25 MILLIGRAM, TID
     Route: 065
     Dates: start: 20230424, end: 20230430
  2. CARBIDOPA [Concomitant]
     Active Substance: CARBIDOPA
     Route: 065
  3. DONEPEZIL HYDROCHLORIDE [Concomitant]
     Active Substance: DONEPEZIL HYDROCHLORIDE
     Route: 065
  4. RISPERIDONE [Concomitant]
     Active Substance: RISPERIDONE
     Route: 065

REACTIONS (4)
  - Constipation [Fatal]
  - Gastrointestinal haemorrhage [Fatal]
  - Melaena [Fatal]
  - Loss of consciousness [Unknown]

NARRATIVE: CASE EVENT DATE: 20240503
